FAERS Safety Report 23678140 (Version 5)
Quarter: 2024Q3

REPORT INFORMATION
  Report Type: Spontaneous
  Country: DE (occurrence: DE)
  Receive Date: 20240327
  Receipt Date: 20240806
  Transmission Date: 20241017
  Serious: Yes (Hospitalization, Other)
  Sender: MERCK
  Company Number: DE-Eisai-EC-2024-161037

PATIENT
  Sex: Male

DRUGS (9)
  1. PEMBROLIZUMAB [Suspect]
     Active Substance: PEMBROLIZUMAB
     Indication: Renal cell carcinoma
     Dosage: DOSE AND FREQUENCY UNKNOWN
     Route: 042
     Dates: start: 202312, end: 202312
  2. PEMBROLIZUMAB [Suspect]
     Active Substance: PEMBROLIZUMAB
     Dosage: CYCLE 1
     Route: 042
     Dates: start: 202402
  3. PEMBROLIZUMAB [Suspect]
     Active Substance: PEMBROLIZUMAB
     Dosage: DOSE AND FREQUENCY UNKNOWN
     Route: 042
     Dates: start: 202404
  4. LENVATINIB MESYLATE [Suspect]
     Active Substance: LENVATINIB MESYLATE
     Indication: Renal cell carcinoma
     Dosage: 20 MG EVERY 2 DAYS PLUS 10 MG EVERY 2 DAYS (ALTERNATING)
     Route: 048
     Dates: start: 202312, end: 202402
  5. LENVATINIB MESYLATE [Suspect]
     Active Substance: LENVATINIB MESYLATE
     Dosage: 10 MG (INTERRUPTED IN PHASES)QD
     Route: 048
     Dates: start: 202402, end: 202403
  6. LENVATINIB MESYLATE [Suspect]
     Active Substance: LENVATINIB MESYLATE
     Dosage: 10 MG (4 - 5 WEEKS)QD
     Route: 048
     Dates: start: 202404, end: 202405
  7. LENVATINIB MESYLATE [Suspect]
     Active Substance: LENVATINIB MESYLATE
     Dosage: 10 MG (APROX. 5 DAYS/WEEKS AND 2 DAYS WITHOUT THERAPY)
     Route: 048
     Dates: start: 202405
  8. METOPROLOL [Concomitant]
     Active Substance: METOPROLOL
     Indication: Product used for unknown indication
     Dosage: UNK
  9. LEVETIRACETAM [Concomitant]
     Active Substance: LEVETIRACETAM
     Indication: Product used for unknown indication
     Dosage: UNK

REACTIONS (9)
  - Cardiogenic shock [Recovering/Resolving]
  - Diarrhoea [Recovered/Resolved]
  - Urinary retention [Recovered/Resolved]
  - Pulmonary oedema [Unknown]
  - Off label use [Recovering/Resolving]
  - Arthralgia [Recovering/Resolving]
  - Oral candidiasis [Recovering/Resolving]
  - Dry mouth [Not Recovered/Not Resolved]
  - Confusional state [Unknown]

NARRATIVE: CASE EVENT DATE: 20240201
